FAERS Safety Report 9681778 (Version 1)
Quarter: 2013Q4

REPORT INFORMATION
  Report Type: Spontaneous
  Country: GB (occurrence: GB)
  Receive Date: 20131011
  Receipt Date: 20131011
  Transmission Date: 20140711
  Serious: Yes (Disabling, Other)
  Sender: FDA-Public Use
  Company Number: GB-DRREDDYS-GER/UKI/13/0034796

PATIENT
  Age: 17 Year
  Sex: Female
  Weight: 51.5 kg

DRUGS (3)
  1. SERTRALINE [Suspect]
     Indication: DEPRESSION
     Route: 048
     Dates: start: 20130828, end: 20130903
  2. SERTRALINE [Suspect]
     Indication: GENERALISED ANXIETY DISORDER
  3. PROPRANOLOL [Concomitant]
     Indication: PRODUCT USED FOR UNKNOWN INDICATION
     Dates: end: 201308

REACTIONS (8)
  - Ocular hyperaemia [Recovering/Resolving]
  - Arthralgia [Recovering/Resolving]
  - Hypersensitivity [Recovering/Resolving]
  - Chromaturia [Recovering/Resolving]
  - C-reactive protein increased [Unknown]
  - Gamma-glutamyltransferase increased [Unknown]
  - Blood thyroid stimulating hormone increased [Unknown]
  - Prothrombin time prolonged [Unknown]
